FAERS Safety Report 6379814-7 (Version None)
Quarter: 2009Q3

REPORT INFORMATION
  Report Type: 
  Country: None (occurrence: None)
  Receive Date: 20090924
  Receipt Date: 20090924
  Transmission Date: 20100115
  Serious: Yes (Life-Threatening)
  Sender: FDA-Public Use
  Company Number: None

PATIENT
  Age: 57 Year
  Sex: Female
  Weight: 54.4316 kg

DRUGS (2)
  1. VENLAFAXINE HCL EXTENDED-RELEASE [Suspect]
     Indication: FIBROMYALGIA
     Dosage: 1 TABLET DAILY PO
     Route: 048
     Dates: start: 20090910, end: 20090913
  2. PRISTIQ [Suspect]
     Indication: FIBROMYALGIA
     Dosage: 1TAB DAILY PO
     Route: 048
     Dates: start: 20090707, end: 20090913

REACTIONS (12)
  - BONE PAIN [None]
  - CHEST PAIN [None]
  - CONFUSIONAL STATE [None]
  - DEHYDRATION [None]
  - DIARRHOEA [None]
  - ENERGY INCREASED [None]
  - HYPERTENSION [None]
  - INFLUENZA LIKE ILLNESS [None]
  - INSOMNIA [None]
  - MYALGIA [None]
  - NAUSEA [None]
  - SALIVARY HYPERSECRETION [None]
